FAERS Safety Report 5421773-5 (Version None)
Quarter: 2007Q3

REPORT INFORMATION
  Report Type: 
  Country: None (occurrence: None)
  Receive Date: 20070820
  Receipt Date: 20070807
  Transmission Date: 20080115
  Serious: Yes (Hospitalization)
  Sender: FDA-Public Use
  Company Number: 2007BI010301

PATIENT
  Age: 25 Year
  Sex: Female

DRUGS (2)
  1. AVONEX [Suspect]
     Indication: MULTIPLE SCLEROSIS
     Dosage: IM
     Route: 030
     Dates: start: 19990301, end: 20010601
  2. ANTIDEPRESSANTS [Concomitant]

REACTIONS (3)
  - CAESAREAN SECTION [None]
  - DRUG EXPOSURE BEFORE PREGNANCY [None]
  - GENITAL HERPES [None]
